FAERS Safety Report 4277924-1 (Version None)
Quarter: 2004Q1

REPORT INFORMATION
  Report Type: 
  Country: None (occurrence: None)
  Receive Date: 20040123
  Receipt Date: 20040117
  Transmission Date: 20041129
  Serious: Yes (Other)
  Sender: FDA-Public Use
  Company Number: GB-GLAXOSMITHKLINE-B0320172A

PATIENT
  Age: 23 Year
  Sex: Female

DRUGS (2)
  1. CEFUROXIME SODIUM [Suspect]
     Indication: KIDNEY INFECTION
     Dosage: 750MG PER DAY
     Route: 042
     Dates: start: 20030903, end: 20030906
  2. CODEINE PHOSPHATE [Concomitant]
     Dosage: 30MG PER DAY
     Route: 048
     Dates: start: 20030902

REACTIONS (3)
  - DYSPNOEA [None]
  - OXYGEN SATURATION DECREASED [None]
  - PYREXIA [None]
